FAERS Safety Report 19320212 (Version 1)
Quarter: 2021Q2

REPORT INFORMATION
  Report Type: Spontaneous
  Country: US (occurrence: US)
  Receive Date: 20210528
  Receipt Date: 20210528
  Transmission Date: 20210717
  Serious: No
  Sender: FDA-Public Use
  Company Number: None

PATIENT
  Age: 68 Year
  Sex: Female
  Weight: 73 kg

DRUGS (13)
  1. PRILOSEC OTC [Concomitant]
     Active Substance: OMEPRAZOLE MAGNESIUM
  2. ANASTROZOLE. [Concomitant]
     Active Substance: ANASTROZOLE
  3. LIPITOR [Concomitant]
     Active Substance: ATORVASTATIN CALCIUM
  4. FOSAMAX [Concomitant]
     Active Substance: ALENDRONATE SODIUM
  5. LUTEIN [Concomitant]
     Active Substance: LUTEIN
  6. IBRANCE [Suspect]
     Active Substance: PALBOCICLIB
     Indication: BREAST CANCER
     Route: 048
     Dates: start: 20210507
  7. ASPIRIN. [Concomitant]
     Active Substance: ASPIRIN
  8. CALCIUM 500 + D3 [Concomitant]
  9. NITROSTAT [Concomitant]
     Active Substance: NITROGLYCERIN
  10. LISINOPRIL. [Concomitant]
     Active Substance: LISINOPRIL
  11. ZOLEDRONIC ACID [Concomitant]
     Active Substance: ZOLEDRONIC ACID
  12. AMLODIPINE BESYLATE. [Concomitant]
     Active Substance: AMLODIPINE BESYLATE
  13. ATENOLOL. [Concomitant]
     Active Substance: ATENOLOL

REACTIONS (2)
  - Ageusia [None]
  - Decreased appetite [None]

NARRATIVE: CASE EVENT DATE: 20210510
